FAERS Safety Report 18130349 (Version 2)
Quarter: 2020Q3

REPORT INFORMATION
  Report Type: Spontaneous
  Country: TW (occurrence: TW)
  Receive Date: 20200810
  Receipt Date: 20200812
  Transmission Date: 20201103
  Serious: Yes (Other)
  Sender: FDA-Public Use
  Company Number: TW-BAYER-2020-166342

PATIENT

DRUGS (1)
  1. NEXAVAR [Suspect]
     Active Substance: SORAFENIB
     Indication: HEPATOCELLULAR CARCINOMA
     Route: 048

REACTIONS (5)
  - Palmar-plantar erythrodysaesthesia syndrome [None]
  - Impaired quality of life [None]
  - Hepatocellular carcinoma [None]
  - Negative thoughts [None]
  - Fatigue [None]
